FAERS Safety Report 13939019 (Version 1)
Quarter: 2017Q3

REPORT INFORMATION
  Report Type: Report from Study
  Country: US (occurrence: US)
  Receive Date: 20170906
  Receipt Date: 20170906
  Transmission Date: 20171127
  Serious: Yes (Hospitalization)
  Sender: FDA-Public Use
  Company Number: US-ROCHE-1987935

PATIENT
  Age: 59 Year
  Sex: Male
  Weight: 76.5 kg

DRUGS (2)
  1. RO 6958688 (T-CELL BISPECIFIC MONOCLONAL ANTIBODY) [Suspect]
     Active Substance: INVESTIGATIONAL PRODUCT
     Indication: METASTATIC NEOPLASM
     Dosage: MOST RECENT DOSE: 09/AUG/2017
     Route: 042
     Dates: start: 20170612
  2. ATEZOLIZUMAB. [Suspect]
     Active Substance: ATEZOLIZUMAB
     Indication: METASTATIC NEOPLASM
     Dosage: MOST RECENT DOSE: 09/AUG/2017
     Route: 042
     Dates: start: 20170612

REACTIONS (1)
  - Blood bilirubin increased [Not Recovered/Not Resolved]

NARRATIVE: CASE EVENT DATE: 20170829
